FAERS Safety Report 21884041 (Version 2)
Quarter: 2023Q1

REPORT INFORMATION
  Report Type: Spontaneous
  Country: US (occurrence: US)
  Receive Date: 20230119
  Receipt Date: 20230124
  Transmission Date: 20230417
  Serious: No
  Sender: FDA-Public Use
  Company Number: US-BRISTOL-MYERS SQUIBB COMPANY-2023-006803

PATIENT
  Age: 68 Year
  Sex: Male

DRUGS (2)
  1. POMALYST [Suspect]
     Active Substance: POMALIDOMIDE
     Indication: Plasma cell myeloma
     Dosage: FREQ: TAKE 1 CAPSULE BY MOUTH EVERY DAY FOR 21 DAYS FOLLOWED BY 7 DAYS REST PERIOD OF  28 DAY CYCLE.
     Route: 048
     Dates: start: 20220224
  2. ATB [Concomitant]
     Indication: Product used for unknown indication

REACTIONS (5)
  - Cough [Unknown]
  - Viral infection [Unknown]
  - Asthenia [Unknown]
  - Fatigue [Unknown]
  - Product dose omission issue [Unknown]
